FAERS Safety Report 24573094 (Version 5)
Quarter: 2025Q2

REPORT INFORMATION
  Report Type: Spontaneous
  Country: US (occurrence: US)
  Receive Date: 20241101
  Receipt Date: 20250506
  Transmission Date: 20250717
  Serious: No
  Sender: SUNOVION
  Company Number: US-SMPA-2024SPA004399AA

PATIENT

DRUGS (3)
  1. ORGOVYX [Suspect]
     Active Substance: RELUGOLIX
     Indication: Prostate cancer
     Route: 048
     Dates: start: 20220303, end: 20220303
  2. ORGOVYX [Suspect]
     Active Substance: RELUGOLIX
     Dosage: 120 MG, QD
     Route: 048
     Dates: start: 20220304
  3. XTANDI [Concomitant]
     Active Substance: ENZALUTAMIDE
     Indication: Prostate cancer
     Dosage: 160 MG, QD
     Route: 065
     Dates: start: 20241017

REACTIONS (20)
  - Decreased appetite [Unknown]
  - Balance disorder [Unknown]
  - Flatulence [Unknown]
  - Feeling abnormal [Unknown]
  - Palpitations [Unknown]
  - Illness [Unknown]
  - Sedation [Unknown]
  - Frustration tolerance decreased [Unknown]
  - Abdominal rigidity [Unknown]
  - Muscle strain [Unknown]
  - Nightmare [Unknown]
  - Emotional disorder [Unknown]
  - Night sweats [Unknown]
  - Blood pressure increased [Unknown]
  - Dizziness postural [Unknown]
  - Nausea [Not Recovered/Not Resolved]
  - Abdominal discomfort [Unknown]
  - Hot flush [Not Recovered/Not Resolved]
  - Insomnia [Unknown]
  - Therapy interrupted [Unknown]
